FAERS Safety Report 18273926 (Version 2)
Quarter: 2020Q4

REPORT INFORMATION
  Report Type: Spontaneous
  Country: GB (occurrence: GB)
  Receive Date: 20200916
  Receipt Date: 20201007
  Transmission Date: 20210113
  Serious: Yes (Other)
  Sender: FDA-Public Use
  Company Number: GB-TEVA-2020-GB-1827221

PATIENT

DRUGS (4)
  1. LANSOPRAZOLE. [Concomitant]
     Active Substance: LANSOPRAZOLE
  2. GRAPEFRUIT. [Interacting]
     Active Substance: GRAPEFRUIT
     Route: 065
  3. AMOXICILLIN. [Concomitant]
     Active Substance: AMOXICILLIN
  4. CLARITHROMYCIN. [Suspect]
     Active Substance: CLARITHROMYCIN
     Dosage: 2DOSAGEFORM
     Route: 065
     Dates: start: 20200801, end: 20200807

REACTIONS (4)
  - Gastric disorder [Unknown]
  - Nausea [Unknown]
  - Abdominal distension [Unknown]
  - Food interaction [Unknown]

NARRATIVE: CASE EVENT DATE: 20200803
